FAERS Safety Report 16483991 (Version 1)
Quarter: 2019Q3

REPORT INFORMATION
  Report Type: Spontaneous
  Country: US (occurrence: US)
  Receive Date: 20190625
  Receipt Date: 20190625
  Transmission Date: 20191004
  Serious: No
  Sender: FDA-Public Use
  Company Number: None

PATIENT
  Age: 48 Year
  Sex: Female

DRUGS (11)
  1. SODIUM CHLORIDE 7% [Concomitant]
     Active Substance: SODIUM CHLORIDE
  2. COLISTIMETHATE [Concomitant]
     Active Substance: COLISTIMETHATE SODIUM
  3. PULMOZYME 1MG/ML NEB [Concomitant]
  4. PREDNISONE 5MG [Concomitant]
     Active Substance: PREDNISONE
  5. LUNESTA [Concomitant]
     Active Substance: ESZOPICLONE
  6. AZITHROMYCIN 250MG [Concomitant]
     Active Substance: AZITHROMYCIN ANHYDROUS
  7. XOPENEX 0.63MG/3ML [Concomitant]
  8. MVW D300 MVI [Concomitant]
  9. KALYDECO [Suspect]
     Active Substance: IVACAFTOR
     Indication: CYSTIC FIBROSIS
     Route: 048
  10. GABAPENTIN 300MG [Concomitant]
     Active Substance: GABAPENTIN
  11. PANTOPRAZOLE 20MG [Concomitant]
     Active Substance: PANTOPRAZOLE SODIUM

REACTIONS (1)
  - Dyspnoea [None]

NARRATIVE: CASE EVENT DATE: 20190624
